FAERS Safety Report 5765822-3 (Version None)
Quarter: 2008Q2

REPORT INFORMATION
  Report Type: 
  Country: None (occurrence: None)
  Receive Date: 20080605
  Receipt Date: 20080521
  Transmission Date: 20081010
  Serious: Yes (Hospitalization)
  Sender: FDA-Public Use
  Company Number: 230001L08GBR

PATIENT
  Age: 43 Year
  Sex: Male

DRUGS (2)
  1. INTERFERON BETA (INTERFERON BETA) [Suspect]
  2. RIBAVIRIN [Suspect]

REACTIONS (3)
  - PSORIASIS [None]
  - PSORIATIC ARTHROPATHY [None]
  - SYNOVITIS [None]
